FAERS Safety Report 6228797-9 (Version None)
Quarter: 2009Q2

REPORT INFORMATION
  Report Type: 
  Country: None (occurrence: None)
  Receive Date: 20090615
  Receipt Date: 20090603
  Transmission Date: 20091009
  Serious: Yes (Other)
  Sender: FDA-Public Use
  Company Number: PHEH2009US05222

PATIENT
  Sex: Female

DRUGS (5)
  1. EXJADE [Suspect]
     Indication: LYMPHOMA
     Dosage: 2500 MG, QD
     Route: 048
     Dates: start: 20080430, end: 20090522
  2. GABAPENTIN [Concomitant]
  3. ELAVIL [Concomitant]
  4. CALCIUM [Concomitant]
  5. AMICAR [Concomitant]

REACTIONS (2)
  - NEURALGIA [None]
  - NEUROPATHY PERIPHERAL [None]
